FAERS Safety Report 5650428-7 (Version None)
Quarter: 2008Q1

REPORT INFORMATION
  Report Type: 
  Country: None (occurrence: None)
  Receive Date: 20080303
  Receipt Date: 20080215
  Transmission Date: 20080703
  Serious: Yes (Life-Threatening, Hospitalization, Other)
  Sender: FDA-Public Use
  Company Number: 2008SP003990

PATIENT
  Age: 60 Year
  Sex: Female

DRUGS (4)
  1. EPTIFIBATIDE (S-P) (EPTIFIBATIDE) [Suspect]
     Indication: ACUTE CORONARY SYNDROME
     Dosage: ; ONCE; INBO, ; INDRP
     Dates: start: 20080211, end: 20080211
  2. EPTIFIBATIDE (S-P) (EPTIFIBATIDE) [Suspect]
     Indication: ACUTE CORONARY SYNDROME
     Dosage: ; ONCE; INBO, ; INDRP
     Dates: start: 20080211, end: 20080211
  3. ASPIRIN [Concomitant]
  4. CLOPIDOGREL /01220702/ [Concomitant]

REACTIONS (3)
  - BRADYCARDIA [None]
  - CARDIAC ARREST [None]
  - DIZZINESS [None]
